FAERS Safety Report 11890685 (Version 1)
Quarter: 2016Q1

REPORT INFORMATION
  Report Type: Report from Study
  Country: US (occurrence: US)
  Receive Date: 20160105
  Receipt Date: 20160105
  Transmission Date: 20160526
  Serious: Yes (Other)
  Sender: FDA-Public Use
  Company Number: US-BIOGEN-2016BI00167291

PATIENT
  Sex: Female

DRUGS (1)
  1. PLEGRIDY [Suspect]
     Active Substance: PEGINTERFERON BETA-1A
     Indication: MULTIPLE SCLEROSIS
     Route: 058
     Dates: start: 20150810

REACTIONS (7)
  - Pruritus [Unknown]
  - Drug intolerance [Unknown]
  - Paraesthesia [Unknown]
  - Pyrexia [Unknown]
  - Injection site erythema [Unknown]
  - Hypoaesthesia [Unknown]
  - Pain [Unknown]
